FAERS Safety Report 7581847-X (Version None)
Quarter: 2011Q2

REPORT INFORMATION
  Report Type: 
  Country: None (occurrence: None)
  Receive Date: 20110629
  Receipt Date: 20110622
  Transmission Date: 20111010
  Serious: Yes (Hospitalization)
  Sender: FDA-Public Use
  Company Number: PHHO2011HU08606

PATIENT
  Sex: Female
  Weight: 22 kg

DRUGS (13)
  1. BLINDED NO TREATMENT RECEIVED [Concomitant]
     Indication: CYSTIC FIBROSIS
     Dosage: CODE NOT BROKEN
     Dates: start: 20101004
  2. PULMICORT [Concomitant]
     Indication: CARDIAC FAILURE
     Dosage: 200 MG, BID
     Dates: start: 20090109
  3. MONTELUKAST SODIUM [Concomitant]
     Indication: ASTHMA
  4. CREON [Concomitant]
     Indication: CARDIAC FAILURE
     Dosage: 7.5 IU, UNK
     Dates: start: 20041210
  5. PULMICORT [Concomitant]
     Indication: ASTHMA
  6. MONTELUKAST SODIUM [Concomitant]
     Indication: CARDIAC FAILURE
     Dosage: 4 MG, UNK
     Route: 048
     Dates: start: 20090109
  7. TOBRAMYCIN [Suspect]
     Indication: CYSTIC FIBROSIS
     Dosage: CODE NOT BROKEN
     Dates: start: 20101004
  8. AMBROXOL [Concomitant]
     Indication: CARDIAC FAILURE
     Dosage: 4 ML, BID
     Route: 048
  9. BLINDED NO TREATMENT RECEIVED [Suspect]
     Indication: PSEUDOMONAS INFECTION
  10. TOBRAMYCIN [Suspect]
     Indication: PSEUDOMONAS INFECTION
  11. PLACEBO [Suspect]
     Indication: CYSTIC FIBROSIS
     Dosage: CODE NOT BROKEN
     Dates: start: 20101004
  12. PLACEBO [Suspect]
     Indication: PSEUDOMONAS INFECTION
  13. ACETYLCYSTEINE [Concomitant]
     Indication: CARDIAC FAILURE
     Dosage: 200 MG, TID
     Route: 048
     Dates: start: 20050211

REACTIONS (2)
  - INFECTIVE PULMONARY EXACERBATION OF CYSTIC FIBROSIS [None]
  - BRONCHOPNEUMONIA [None]
